FAERS Safety Report 7779773-6 (Version None)
Quarter: 2011Q3

REPORT INFORMATION
  Report Type: 
  Country: None (occurrence: None)
  Receive Date: 20110927
  Receipt Date: 20110912
  Transmission Date: 20111222
  Serious: Yes (Other)
  Sender: FDA-Public Use
  Company Number: CO-JNJFOC-20110906161

PATIENT
  Age: 44 Year
  Sex: Female

DRUGS (1)
  1. INVEGA SUSTENNA [Suspect]
     Indication: PRODUCT USED FOR UNKNOWN INDICATION
     Route: 030
     Dates: start: 20110830, end: 20110906

REACTIONS (3)
  - DYSPNOEA [None]
  - TREMOR [None]
  - POISONING [None]
